FAERS Safety Report 8621684-8 (Version None)
Quarter: 2012Q3

REPORT INFORMATION
  Report Type: 
  Country: None (occurrence: None)
  Receive Date: 20120825
  Receipt Date: 20120820
  Transmission Date: 20120928
  Serious: Yes (Hospitalization)
  Sender: FDA-Public Use
  Company Number: JP-009507513-1208JPN008822

PATIENT

DRUGS (2)
  1. PEG-INTRON [Suspect]
     Dosage: 100 MICROGRAM PER KILOGRAM, 5 TIMES A WEEK
     Route: 058
  2. REBETOL [Suspect]
     Dosage: 600 MG, QD
     Route: 048

REACTIONS (1)
  - PLEURISY [None]
